FAERS Safety Report 5492289-5 (Version None)
Quarter: 2007Q4

REPORT INFORMATION
  Report Type: 
  Country: None (occurrence: None)
  Receive Date: 20071015
  Receipt Date: 20070711
  Transmission Date: 20080405
  Serious: No
  Sender: FDA-Public Use
  Company Number: 2007SP002514

PATIENT
  Age: 61 Year
  Sex: Female
  Weight: 86.1834 kg

DRUGS (3)
  1. LUNESTA [Suspect]
     Indication: INSOMNIA
     Dosage: 3 MG;1X;ORAL
     Route: 048
     Dates: start: 20070710, end: 20070710
  2. CRESTOR [Concomitant]
  3. RESTORIL [Concomitant]

REACTIONS (5)
  - DRUG INEFFECTIVE [None]
  - DYSGEUSIA [None]
  - MIDDLE INSOMNIA [None]
  - NAUSEA [None]
  - NIGHTMARE [None]
